FAERS Safety Report 23247477 (Version 1)
Quarter: 2023Q4

REPORT INFORMATION
  Report Type: Spontaneous
  Country: US (occurrence: US)
  Receive Date: 20231130
  Receipt Date: 20231130
  Transmission Date: 20240109
  Serious: Yes (Other)
  Sender: FDA-Public Use
  Company Number: US-APELLIS PHARMACEUTICALS-APL-2023-003157

PATIENT
  Sex: Female

DRUGS (5)
  1. SYFOVRE [Suspect]
     Active Substance: PEGCETACOPLAN
     Indication: Dry age-related macular degeneration
     Dosage: UNK, OD
     Dates: start: 20230921, end: 20230921
  2. DIAZEPAM [Concomitant]
     Active Substance: DIAZEPAM
     Indication: Product used for unknown indication
  3. ZOLPIDEM [Concomitant]
     Active Substance: ZOLPIDEM TARTRATE
     Indication: Product used for unknown indication
  4. LOSARTAN [Concomitant]
     Active Substance: LOSARTAN
     Indication: Product used for unknown indication
  5. METAXALONE [Concomitant]
     Active Substance: METAXALONE
     Indication: Product used for unknown indication

REACTIONS (1)
  - Iridocyclitis [Recovered/Resolved]

NARRATIVE: CASE EVENT DATE: 20231012
